FAERS Safety Report 6233202-2 (Version None)
Quarter: 2009Q2

REPORT INFORMATION
  Report Type: 
  Country: None (occurrence: None)
  Receive Date: 20090617
  Receipt Date: 20090608
  Transmission Date: 20091009
  Serious: Yes (Other)
  Sender: FDA-Public Use
  Company Number: PHHY2009MX22876

PATIENT
  Age: 76 Year
  Sex: Female

DRUGS (1)
  1. ZELMAC [Suspect]
     Indication: IRRITABLE BOWEL SYNDROME
     Dosage: 2 TABLETS PER DAY (6MG)
     Route: 048
     Dates: start: 20090501, end: 20090501

REACTIONS (1)
  - GASTRIC ULCER [None]
